FAERS Safety Report 6943412-4 (Version None)
Quarter: 2010Q3

REPORT INFORMATION
  Report Type: 
  Country: None (occurrence: None)
  Receive Date: 20100826
  Receipt Date: 20100819
  Transmission Date: 20110219
  Serious: Yes (Hospitalization, Other)
  Sender: FDA-Public Use
  Company Number: US-ABBOTT-10P-163-0665197-00

PATIENT
  Sex: Female
  Weight: 104.42 kg

DRUGS (6)
  1. HUMIRA [Suspect]
     Indication: ANKYLOSING SPONDYLITIS
     Dates: start: 20071201, end: 20100613
  2. HUMIRA [Suspect]
     Dates: start: 20100814
  3. LISINOPRIL [Concomitant]
     Indication: HYPERTENSION
  4. VITAMIN D [Concomitant]
     Indication: VITAMIN SUPPLEMENTATION
  5. FLEXERIL [Concomitant]
     Indication: ANKYLOSING SPONDYLITIS
     Dosage: AT BED TIME
  6. IBUPROFEN [Concomitant]
     Indication: PRODUCT USED FOR UNKNOWN INDICATION

REACTIONS (9)
  - ANKYLOSING SPONDYLITIS [None]
  - HEADACHE [None]
  - HYDROCEPHALUS [None]
  - HYPOKINESIA [None]
  - NEPHROLITHIASIS [None]
  - NERVOUS SYSTEM DISORDER [None]
  - PAPILLOEDEMA [None]
  - PROCEDURAL COMPLICATION [None]
  - VISION BLURRED [None]
